FAERS Safety Report 14057246 (Version 2)
Quarter: 2023Q2

REPORT INFORMATION
  Report Type: Spontaneous
  Country: IT (occurrence: IT)
  Receive Date: 20171006
  Receipt Date: 20230505
  Transmission Date: 20230721
  Serious: Yes (Life-Threatening)
  Sender: FDA-Public Use
  Company Number: IT-AMGEN-ITASP2017151761

PATIENT
  Age: 30 Year
  Sex: Male
  Weight: 94 kg

DRUGS (1)
  1. BLINCYTO [Suspect]
     Active Substance: BLINATUMOMAB
     Indication: Lymphocytic leukaemia
     Dosage: 28 MUG, QD
     Route: 042
     Dates: start: 20170711, end: 20170808

REACTIONS (4)
  - Epilepsy [Unknown]
  - Intracranial pressure increased [Unknown]
  - Hypertensive hydrocephalus [Unknown]
  - Brain oedema [Unknown]

NARRATIVE: CASE EVENT DATE: 20170820
